FAERS Safety Report 11938118 (Version 1)
Quarter: 2016Q1

REPORT INFORMATION
  Report Type: Other
  Country: IT (occurrence: IT)
  Receive Date: 20160122
  Receipt Date: 20160122
  Transmission Date: 20160526
  Serious: Yes (Other)
  Sender: FDA-Public Use
  Company Number: IT-JUBILANT GENERICS LIMITED-1046754

PATIENT
  Age: 59 Year
  Sex: Female

DRUGS (2)
  1. MONTELUKAST SODIUM. [Suspect]
     Active Substance: MONTELUKAST SODIUM
  2. UNSPECIFIED CORTICOSTEROIDS [Concomitant]

REACTIONS (3)
  - Subarachnoid haemorrhage [Unknown]
  - Coma [Unknown]
  - Granulomatosis with polyangiitis [Recovering/Resolving]

NARRATIVE: CASE EVENT DATE: 20160112
